FAERS Safety Report 17419175 (Version 1)
Quarter: 2020Q1

REPORT INFORMATION
  Report Type: Spontaneous
  Country: US (occurrence: US)
  Receive Date: 20200214
  Receipt Date: 20200214
  Transmission Date: 20200409
  Serious: No
  Sender: FDA-Public Use
  Company Number: US-UNITED THERAPEUTICS-UNT-2020-000961

PATIENT
  Age: 45 Year
  Sex: Female
  Weight: 99.77 kg

DRUGS (3)
  1. TYVASO [Suspect]
     Active Substance: TREPROSTINIL
     Indication: PULMONARY ARTERIAL HYPERTENSION
     Dosage: 60-120 ?G, QID
     Dates: start: 20130321
  2. OPSUMIT [Concomitant]
     Active Substance: MACITENTAN
     Indication: PRODUCT USED FOR UNKNOWN INDICATION
     Dosage: UNK
     Route: 065
  3. TYVASO [Suspect]
     Active Substance: TREPROSTINIL
     Dosage: 18-54 ?G, QID

REACTIONS (9)
  - Abdominal distension [Unknown]
  - Off label use [Unknown]
  - Hepatic steatosis [Unknown]
  - Hepatomegaly [Unknown]
  - Splenomegaly [Unknown]
  - Sinus disorder [Unknown]
  - Purulent discharge [Recovering/Resolving]
  - Nasopharyngitis [Unknown]
  - Wound secretion [Recovering/Resolving]

NARRATIVE: CASE EVENT DATE: 20130321
